FAERS Safety Report 10206256 (Version 2)
Quarter: 2014Q2

REPORT INFORMATION
  Report Type: Spontaneous
  Country: US (occurrence: US)
  Receive Date: 20140530
  Receipt Date: 20140630
  Transmission Date: 20141212
  Serious: No
  Sender: FDA-Public Use
  Company Number: US-BAYER-2014-080007

PATIENT
  Age: 39 Year
  Sex: Female

DRUGS (1)
  1. CLIMARA PRO [Suspect]
     Indication: HORMONE REPLACEMENT THERAPY
     Dosage: 1 DF, OW
     Route: 062
     Dates: start: 20140521

REACTIONS (4)
  - Product adhesion issue [None]
  - Multiple use of single-use product [None]
  - Product adhesion issue [None]
  - Menstrual disorder [None]
